FAERS Safety Report 6796354-1 (Version None)
Quarter: 2010Q2

REPORT INFORMATION
  Report Type: 
  Country: None (occurrence: None)
  Receive Date: 20100622
  Receipt Date: 20100614
  Transmission Date: 20101027
  Serious: Yes (Hospitalization)
  Sender: FDA-Public Use
  Company Number: KV201000198

PATIENT
  Age: 40 Year
  Sex: Female

DRUGS (1)
  1. AMLODIPINE BESYLATE (AMLODIPINE BESYLATE) TABLET 2.5 MG [Suspect]
     Indication: HYPERTENSION
     Dosage: ORAL
     Route: 048

REACTIONS (3)
  - HYPERMAGNESAEMIA [None]
  - HYPOCALCAEMIA [None]
  - NEUROMUSCULAR BLOCKADE [None]
